FAERS Safety Report 10023490 (Version 1)
Quarter: 2014Q1

REPORT INFORMATION
  Report Type: Spontaneous
  Country: US (occurrence: None)
  Receive Date: 20140319
  Receipt Date: 20140319
  Transmission Date: 20141002
  Serious: Yes (Other)
  Sender: FDA-Public Use
  Company Number: None

PATIENT
  Age: 34 Year
  Sex: Female
  Weight: 56.7 kg

DRUGS (1)
  1. SUMATRIPTAN [Suspect]
     Dosage: .5 PILL
     Route: 048

REACTIONS (9)
  - Chest discomfort [None]
  - Abdominal pain upper [None]
  - Vomiting [None]
  - Asthenia [None]
  - Dizziness [None]
  - Product substitution issue [None]
  - Chest pain [None]
  - Abdominal discomfort [None]
  - Product quality issue [None]
